FAERS Safety Report 15842337 (Version 1)
Quarter: 2019Q1

REPORT INFORMATION
  Report Type: Report from Study
  Country: CN (occurrence: CN)
  Receive Date: 20190118
  Receipt Date: 20190118
  Transmission Date: 20190417
  Serious: Yes (Death)
  Sender: FDA-Public Use
  Company Number: CN-MYLANLABS-2019M1001465

PATIENT
  Age: 4 Year
  Sex: Male

DRUGS (39)
  1. METHOTREXATE. [Suspect]
     Active Substance: METHOTREXATE
     Dosage: ON DAY 2, DAY 4 AND DAY 6 OF COPADM1 REGIMEN
     Route: 037
  2. METHOTREXATE. [Suspect]
     Active Substance: METHOTREXATE
     Dosage: ON DAY 1 OF COPADM2 REGIMEN
     Route: 037
  3. METHOTREXATE. [Suspect]
     Active Substance: METHOTREXATE
     Dosage: CONSOLIDATION PHASE
     Route: 037
  4. METHOTREXATE. [Suspect]
     Active Substance: METHOTREXATE
     Dosage: ON DAY 2 OF COPADM2 REGIMEN
     Route: 041
  5. CYCLOPHOSPHAMIDE. [Suspect]
     Active Substance: CYCLOPHOSPHAMIDE
     Dosage: FROM DAY 2 TO DAY 4 OF COPADM1 REGIMEN
     Route: 041
  6. CYTARABINE. [Suspect]
     Active Substance: CYTARABINE
     Dosage: ON DAY 1 OF COP REGIMEN
     Route: 041
  7. METHOTREXATE. [Suspect]
     Active Substance: METHOTREXATE
     Dosage: FROM DAY 15 TO DAY 18 DURING THE LAST 4 HOURS AFTER THE CYVE1 REGIMEN
     Route: 041
  8. DAUNORUBICIN [Suspect]
     Active Substance: DAUNORUBICIN
     Indication: BURKITT^S LYMPHOMA
     Dosage: ON DAY 2 AND DAY 3 OF COPADM1 REGIMEN
     Route: 041
  9. CYCLOPHOSPHAMIDE. [Suspect]
     Active Substance: CYCLOPHOSPHAMIDE
     Indication: BURKITT^S LYMPHOMA
     Dosage: ON DAY 1 OF COP REGIMEN
     Route: 041
  10. PREDNISONE. [Suspect]
     Active Substance: PREDNISONE
     Dosage: SEPARATED INTO TWO TIMES FROM DAY 1 TO DAY 5 OF COPADM1 REGIMEN
     Route: 048
  11. PREDNISONE. [Suspect]
     Active Substance: PREDNISONE
     Dosage: SEPARATED INTO TWO TIMES FROM DAY 1 TO DAY 5 OF M3 REGIMEN
     Route: 048
  12. CYCLOPHOSPHAMIDE. [Suspect]
     Active Substance: CYCLOPHOSPHAMIDE
     Dosage: COMPLETED WITHIN 30 MINUTES ON DAY 1 AND DAY 2 OF M3 REGIMEN
     Route: 041
  13. RITUXIMAB. [Suspect]
     Active Substance: RITUXIMAB
     Dosage: ON THE DAY OF CYVE1 IMPLEMENTATION AND THE FOLLOWING DAY, AS WELL AS ON THE FIRST DAY AFTER COMME...
     Route: 041
  14. RITUXIMAB. [Suspect]
     Active Substance: RITUXIMAB
     Dosage: A DAY BEFORE INITIATING M1 REGIMEN
     Route: 041
  15. CYTARABINE. [Suspect]
     Active Substance: CYTARABINE
     Indication: BURKITT^S LYMPHOMA
     Dosage: ON DAY 1, DAY 3 AND DAY 5 OF COP REGIMEN
     Route: 037
  16. CYTARABINE. [Suspect]
     Active Substance: CYTARABINE
     Dosage: CONSOLIDATION PHASE
     Route: 037
  17. CYTARABINE. [Suspect]
     Active Substance: CYTARABINE
     Dosage: AT 08:00 HOURS AND 20:00 HOURS DURING DAY 1 TO DAY 5 OF THE CONSOLIDATION PHASE
     Route: 041
  18. DEXAMETHASONE. [Suspect]
     Active Substance: DEXAMETHASONE
     Dosage: CONSOLIDATION PHASE
     Route: 037
  19. DOXORUBICIN [Suspect]
     Active Substance: DOXORUBICIN
     Dosage: ON DAY 1 AND DAY 2 OF M3 REGIMEN
     Route: 041
  20. ETOPOSIDE. [Suspect]
     Active Substance: ETOPOSIDE
     Indication: BURKITT^S LYMPHOMA
     Dosage: FROM 14:00 HOURS TO 16:00 HOURS DURING DAY 2 TO DAY 5 OF THE CONSOLIDATION PHASE
     Route: 041
  21. ETOPOSIDE. [Suspect]
     Active Substance: ETOPOSIDE
     Dosage: FROM DAY 1 TO DAY 3 OF M2 AND M4 REGIMEN
     Route: 041
  22. VINCRISTINE [Suspect]
     Active Substance: VINCRISTINE
     Dosage: ON DAY 1 OF COPADM1 REGIMEN
     Route: 042
  23. CYTARABINE. [Suspect]
     Active Substance: CYTARABINE
     Dosage: ON DAY 2, DAY 4 AND DAY 6 OF COPADM1 REGIMEN
     Route: 037
  24. PREDNISONE. [Suspect]
     Active Substance: PREDNISONE
     Indication: BURKITT^S LYMPHOMA
     Dosage: SEPARATED INTO TWO TIMES FROM DAY 1 TO DAY 7 OF COP REGIMEN
     Route: 048
  25. CYCLOPHOSPHAMIDE. [Suspect]
     Active Substance: CYCLOPHOSPHAMIDE
     Dosage: EVERY 12 HOURS FROM DAY 2 TO DAY 4 OF COPADM2 REGIMEN
     Route: 041
  26. CYCLOPHOSPHAMIDE. [Suspect]
     Active Substance: CYCLOPHOSPHAMIDE
     Dosage: EVERY 12 HOURS ON DAY 1 AND DAY 2 OF M1 REGIMEN
     Route: 041
  27. VINCRISTINE [Suspect]
     Active Substance: VINCRISTINE
     Dosage: ON DAY 1 OF M3 REGIMEN
     Route: 042
  28. CYTARABINE. [Suspect]
     Active Substance: CYTARABINE
     Dosage: FROM DAY 1 TO DAY 5 OF M2 AND M4 REGIMEN
     Route: 041
  29. DEXAMETHASONE. [Suspect]
     Active Substance: DEXAMETHASONE
     Indication: BURKITT^S LYMPHOMA
     Dosage: ON DAY 1, DAY 3 AND DAY 5 OF COP REGIMEN
     Route: 037
  30. DEXAMETHASONE. [Suspect]
     Active Substance: DEXAMETHASONE
     Dosage: ON DAY 2, DAY 4 AND DAY 6 OF COPADM1 REGIMEN
     Route: 037
  31. DEXAMETHASONE. [Suspect]
     Active Substance: DEXAMETHASONE
     Dosage: ON DAY 1 OF COPADM2 REGIMEN
     Route: 037
  32. DOXORUBICIN [Suspect]
     Active Substance: DOXORUBICIN
     Indication: BURKITT^S LYMPHOMA
     Dosage: ON DAY 2 AND DAY 3 OF M1 REGIMEN
     Route: 041
  33. METHOTREXATE. [Suspect]
     Active Substance: METHOTREXATE
     Dosage: ON DAY 1 OF COPADM1 REGIMEN
     Route: 041
  34. METHOTREXATE. [Suspect]
     Active Substance: METHOTREXATE
     Dosage: ON DAY 1 OF M1 REGIMEN
     Route: 041
  35. VINCRISTINE [Suspect]
     Active Substance: VINCRISTINE
     Indication: BURKITT^S LYMPHOMA
     Dosage: ON DAY 1 OF THE COP REGIMEN
     Route: 042
  36. LEVOMEFOLIC ACID [Concomitant]
     Active Substance: LEVOMEFOLIC ACID
     Dosage: DURING DAY 2 TO DAY 4 OF COPADM1 REGIMEN, 24 HOURS AFTER METHOTREXATE
     Route: 048
  37. CYTARABINE. [Suspect]
     Active Substance: CYTARABINE
     Dosage: ON DAY 1 OF COPADM2 REGIMEN
     Route: 037
  38. METHOTREXATE. [Suspect]
     Active Substance: METHOTREXATE
     Indication: BURKITT^S LYMPHOMA
     Dosage: ON DAY 1, DAY 3 AND DAY 5 OF COP REGIMEN
     Route: 037
  39. RITUXIMAB. [Suspect]
     Active Substance: RITUXIMAB
     Indication: BURKITT^S LYMPHOMA
     Dosage: A DAY PRIOR TO AND ON THE DAY OF INITIATION OF COPADM2 REGIMEN
     Route: 041

REACTIONS (2)
  - Tumour lysis syndrome [Fatal]
  - Renal failure [Fatal]
